FAERS Safety Report 11809951 (Version 1)
Quarter: 2015Q4

REPORT INFORMATION
  Report Type: Spontaneous
  Country: US (occurrence: None)
  Receive Date: 20151207
  Receipt Date: 20151207
  Transmission Date: 20160305
  Serious: Yes (Other)
  Sender: FDA-Public Use
  Company Number: None

PATIENT
  Age: 53 Year
  Sex: Female
  Weight: 48.99 kg

DRUGS (9)
  1. SIMVASTATIN. [Concomitant]
     Active Substance: SIMVASTATIN
  2. LORATADINE. [Concomitant]
     Active Substance: LORATADINE
  3. IC LEVOFLOXACIN DR. REDDY^S LABORATORIES LTD, BACHUPALLY, INDIA [Suspect]
     Active Substance: LEVOFLOXACIN
     Indication: SINUSITIS
     Route: 048
     Dates: start: 20151020, end: 20151030
  4. LEVOTHYROXINE. [Concomitant]
     Active Substance: LEVOTHYROXINE
  5. RHODIOLA [Concomitant]
     Active Substance: HERBALS
  6. IBUPROFEN. [Concomitant]
     Active Substance: IBUPROFEN
  7. STOOL SOFTENER [Concomitant]
     Active Substance: DOCUSATE CALCIUM
  8. DECONGESTANT [Concomitant]
     Active Substance: UNSPECIFIED INGREDIENT
  9. L-THEANINE [Concomitant]
     Active Substance: DIETARY SUPPLEMENT

REACTIONS (8)
  - Pain in extremity [None]
  - Weight bearing difficulty [None]
  - Peripheral coldness [None]
  - Musculoskeletal pain [None]
  - Neck pain [None]
  - Paraesthesia [None]
  - Tenderness [None]
  - Arthralgia [None]

NARRATIVE: CASE EVENT DATE: 20151030
